FAERS Safety Report 25657819 (Version 1)
Quarter: 2025Q3

REPORT INFORMATION
  Report Type: Spontaneous
  Country: RU (occurrence: RU)
  Receive Date: 20250808
  Receipt Date: 20250808
  Transmission Date: 20251021
  Serious: Yes (Hospitalization, Other)
  Sender: SANDOZ
  Company Number: None

PATIENT
  Age: 17 Year

DRUGS (8)
  1. METHOTREXATE [Suspect]
     Active Substance: METHOTREXATE
     Indication: Osteosarcoma metastatic
     Route: 065
     Dates: start: 20240305, end: 20240308
  2. METHOTREXATE [Suspect]
     Active Substance: METHOTREXATE
     Indication: Metastases to lung
     Route: 065
     Dates: start: 20240328, end: 20240408
  3. CISPLATIN [Concomitant]
     Active Substance: CISPLATIN
     Indication: Metastases to lung
     Dosage: 60 MG/M2, SECOND COURSE STANDARD DOSES
     Route: 042
     Dates: start: 20240305, end: 20240308
  4. CISPLATIN [Concomitant]
     Active Substance: CISPLATIN
     Dosage: 60 MG/M2, THIRD COURSE: REPEATING THE SECOND  COURSE OF WEEK 4 TO WEEK 5 OF THE  PROTOCOL (STANDARD
     Route: 042
     Dates: start: 20240328, end: 20240408
  5. CISPLATIN [Concomitant]
     Active Substance: CISPLATIN
     Indication: Osteosarcoma metastatic
     Dosage: FIRST COURSE: 60 MG/M2/DAY  (INTRAVENOUSLY, 2 DAYS)
     Route: 042
     Dates: start: 20240129, end: 20240201
  6. DOXORUBICIN [Concomitant]
     Active Substance: DOXORUBICIN
     Indication: Metastases to lung
     Dosage: 37.5 MG/M2, SECOND COURSE STANDARD DOSES
     Route: 042
     Dates: start: 20240305, end: 20240308
  7. DOXORUBICIN [Concomitant]
     Active Substance: DOXORUBICIN
     Dosage: 37.5 MG/M2, SECOND COURSE STANDARD DOSES
     Route: 042
     Dates: start: 20240328, end: 20240408
  8. DOXORUBICIN [Concomitant]
     Active Substance: DOXORUBICIN
     Indication: Osteosarcoma metastatic
     Dosage: 37.5 MG/M2/DAY (INTRAVENOUSLY, 2 DAYS) MG/M2
     Route: 042
     Dates: start: 20240129, end: 20240201

REACTIONS (6)
  - Toxic leukoencephalopathy [Recovered/Resolved]
  - Hypoproteinaemia [Recovered/Resolved]
  - Chemotherapeutic drug level increased [Recovered/Resolved]
  - Thrombocytopenia [Recovered/Resolved]
  - Hepatotoxicity [Recovered/Resolved]
  - Anaemia [Recovered/Resolved]

NARRATIVE: CASE EVENT DATE: 20240401
